FAERS Safety Report 4675038-X (Version None)
Quarter: 2005Q2

REPORT INFORMATION
  Report Type: 
  Country: None (occurrence: None)
  Receive Date: 20050525
  Receipt Date: 20050509
  Transmission Date: 20051028
  Serious: Yes (Hospitalization)
  Sender: FDA-Public Use
  Company Number: 8010541

PATIENT
  Age: 16 Year
  Sex: Female

DRUGS (2)
  1. KEPPRA [Suspect]
     Indication: CONVULSION
     Dosage: 500 MG 2/D PO
     Route: 048
     Dates: start: 20050401, end: 20050507
  2. KEPPRA [Suspect]
     Indication: CONVULSION
     Dosage: 12.5 G ONCE PO
     Route: 048
     Dates: start: 20050506, end: 20050506

REACTIONS (5)
  - ABNORMAL BEHAVIOUR [None]
  - ARRHYTHMIA [None]
  - INTENTIONAL MISUSE [None]
  - OVERDOSE [None]
  - SUICIDAL IDEATION [None]
